FAERS Safety Report 15976508 (Version 1)
Quarter: 2019Q1

REPORT INFORMATION
  Report Type: Spontaneous
  Country: FR (occurrence: FR)
  Receive Date: 20190218
  Receipt Date: 20190218
  Transmission Date: 20190418
  Serious: Yes (Hospitalization)
  Sender: FDA-Public Use
  Company Number: PHHY2019FR035175

PATIENT
  Age: 36 Year
  Sex: Male

DRUGS (3)
  1. HYDROXYZINE [Suspect]
     Active Substance: HYDROXYZINE HYDROCHLORIDE
     Indication: ANGIOEDEMA
     Dosage: 25 MG, QD  IN EVENING
     Route: 048
     Dates: start: 20181217, end: 20181220
  2. DEXCHLORPHENIRAMINE MALEATE. [Suspect]
     Active Substance: DEXCHLORPHENIRAMINE MALEATE
     Indication: ANGIOEDEMA
     Dosage: 3 DF, QD
     Route: 048
     Dates: start: 20181217, end: 20181220
  3. CETIRIZINE [Suspect]
     Active Substance: CETIRIZINE HYDROCHLORIDE
     Indication: ANGIOEDEMA
     Dosage: UNK UNK, QD (1 TABLET DAILY IN MORNING, THEN 4 TABLETS DAILY)
     Route: 048
     Dates: start: 20181217

REACTIONS (2)
  - Malaise [Recovered/Resolved]
  - Somnolence [Recovered/Resolved]

NARRATIVE: CASE EVENT DATE: 20181219
